FAERS Safety Report 5166447-3 (Version None)
Quarter: 2006Q4

REPORT INFORMATION
  Report Type: 
  Country: None (occurrence: None)
  Receive Date: 20061129
  Receipt Date: 20061116
  Transmission Date: 20070319
  Serious: Yes (Death, Hospitalization)
  Sender: FDA-Public Use
  Company Number: 2006126231

PATIENT
  Age: 60 Year
  Sex: Male
  Weight: 72 kg

DRUGS (8)
  1. SUTENT [Suspect]
     Indication: RENAL CELL CARCINOMA STAGE UNSPECIFIED
     Dosage: 50 MG (50 MG, 1 IN 1 D), ORAL
     Route: 048
     Dates: start: 20051212
  2. BUPRENORPHINE HCL [Concomitant]
  3. CLODRONATE DISODIUM (CLODRONATE DISODIUM) [Concomitant]
  4. TRAMADOL HCL [Concomitant]
  5. LACTULOSE [Concomitant]
  6. VASOCARDIN (METOPROLOL TARTRATE) [Concomitant]
  7. NADROPARIN (NADROPARIN) [Concomitant]
  8. MORPHINE [Concomitant]

REACTIONS (3)
  - DEHYDRATION [None]
  - DIARRHOEA [None]
  - RENAL FAILURE [None]
